FAERS Safety Report 4492197-2 (Version None)
Quarter: 2004Q4

REPORT INFORMATION
  Report Type: 
  Country: None (occurrence: None)
  Receive Date: 20041103
  Receipt Date: 20041025
  Transmission Date: 20050328
  Serious: Yes (Death)
  Sender: FDA-Public Use
  Company Number: US-MERCK-0410USA04078

PATIENT
  Age: 30 Year

DRUGS (2)
  1. PERIACTIN [Suspect]
     Route: 048
  2. AMPHETAMINE [Suspect]
     Route: 065

REACTIONS (1)
  - COMPLETED SUICIDE [None]
